FAERS Safety Report 14429097 (Version 1)
Quarter: 2018Q1

REPORT INFORMATION
  Report Type: Spontaneous
  Country: US (occurrence: US)
  Receive Date: 20180123
  Receipt Date: 20180123
  Transmission Date: 20180509
  Serious: No
  Sender: FDA-Public Use
  Company Number: US-BAUSCH-BL-2017-007834

PATIENT
  Sex: Female

DRUGS (1)
  1. TOBRAMYCIN OPHTHALMIC SOLUTION USP 0.3% [Suspect]
     Active Substance: TOBRAMYCIN
     Indication: CONJUNCTIVITIS
     Dosage: TWO DROPS IN EACH EYE EVERY FOUR HOURS
     Route: 047
     Dates: start: 20170320

REACTIONS (5)
  - Application site discomfort [Unknown]
  - Visual impairment [Unknown]
  - Application site pain [Unknown]
  - Photophobia [Unknown]
  - Headache [Unknown]

NARRATIVE: CASE EVENT DATE: 201703
